FAERS Safety Report 12944876 (Version 1)
Quarter: 2016Q4

REPORT INFORMATION
  Report Type: Report from Study
  Country: US (occurrence: US)
  Receive Date: 20161116
  Receipt Date: 20161116
  Transmission Date: 20170207
  Serious: Yes (Other)
  Sender: FDA-Public Use
  Company Number: US-ROCHE-1852316

PATIENT
  Age: 19 Year
  Sex: Female
  Weight: 47.67 kg

DRUGS (2)
  1. MYCOPHENOLATE MOFETIL. [Suspect]
     Active Substance: MYCOPHENOLATE MOFETIL
     Indication: LUPUS NEPHRITIS
     Route: 048
     Dates: start: 2004, end: 200602
  2. PLAQUENIL [Concomitant]
     Active Substance: HYDROXYCHLOROQUINE SULFATE
     Indication: LUPUS NEPHRITIS
     Route: 065
     Dates: start: 2004

REACTIONS (2)
  - Maternal exposure during pregnancy [Unknown]
  - Death neonatal [Unknown]

NARRATIVE: CASE EVENT DATE: 20060629
